FAERS Safety Report 17303988 (Version 2)
Quarter: 2020Q3

REPORT INFORMATION
  Report Type: Report from Study
  Country: US (occurrence: US)
  Receive Date: 20200122
  Receipt Date: 20200811
  Transmission Date: 20201102
  Serious: Yes (Hospitalization, Other)
  Sender: FDA-Public Use
  Company Number: US-BIOGEN-2020BI00827328

PATIENT
  Sex: Female

DRUGS (2)
  1. MECLAZINE [Concomitant]
     Indication: DIZZINESS
     Route: 065
  2. TECFIDERA [Suspect]
     Active Substance: DIMETHYL FUMARATE
     Indication: MULTIPLE SCLEROSIS
     Dosage: MAINTENANCE DOSE
     Route: 065
     Dates: start: 20170725

REACTIONS (5)
  - Hallucination [Unknown]
  - Hallucination, auditory [Unknown]
  - Seizure [Unknown]
  - Hallucination, visual [Unknown]
  - Memory impairment [Unknown]
